FAERS Safety Report 5416748-6 (Version None)
Quarter: 2007Q3

REPORT INFORMATION
  Report Type: 
  Country: None (occurrence: None)
  Receive Date: 20070816
  Receipt Date: 20070806
  Transmission Date: 20080115
  Serious: Yes (Hospitalization)
  Sender: FDA-Public Use
  Company Number: JP-AMGEN-US196201

PATIENT
  Sex: Male
  Weight: 64 kg

DRUGS (7)
  1. ENBREL [Suspect]
     Indication: RHEUMATOID ARTHRITIS
     Route: 058
     Dates: start: 20060821, end: 20060924
  2. RHEUMATREX [Suspect]
     Dosage: UNKNOWN
     Route: 048
     Dates: start: 20060408
  3. PREDONINE [Suspect]
     Route: 048
     Dates: start: 20041101, end: 20060209
  4. PREDONINE [Suspect]
     Route: 048
     Dates: start: 20060210
  5. OMEPRAZOLE [Concomitant]
     Route: 048
     Dates: start: 20041120
  6. MOBIC [Concomitant]
     Route: 048
     Dates: start: 20041120
  7. METHOTREXATE [Concomitant]
     Dosage: 2 MG, FREQUENCY UNKNOWN
     Route: 048

REACTIONS (1)
  - TUBERCULOSIS [None]
